FAERS Safety Report 6294780-0 (Version None)
Quarter: 2009Q3

REPORT INFORMATION
  Report Type: 
  Country: None (occurrence: None)
  Receive Date: 20090803
  Receipt Date: 20090721
  Transmission Date: 20100115
  Serious: Yes (Other)
  Sender: FDA-Public Use
  Company Number: GB-BAYER-200912562BNE

PATIENT
  Age: 49 Year
  Sex: Female
  Weight: 82 kg

DRUGS (5)
  1. BETAFERON [Suspect]
     Indication: MULTIPLE SCLEROSIS
     Route: 058
     Dates: start: 20060101, end: 20090629
  2. GLUCOSAMINE SULPHATE [Concomitant]
     Indication: SPONDYLITIS
     Dates: start: 20080901
  3. PROPRANOLOL [Concomitant]
     Indication: MIGRAINE
     Dosage: TOTAL DAILY DOSE: 80 MG
     Dates: start: 20070101
  4. SUMATRIPTAN SUCCINATE [Concomitant]
     Indication: DRUG USE FOR UNKNOWN INDICATION
     Dates: start: 19950101
  5. IBUPROFEN [Concomitant]
     Indication: PLANTAR FASCIITIS
     Dosage: TOTAL DAILY DOSE: 1200 MG
     Dates: start: 20090101

REACTIONS (6)
  - ALOPECIA [None]
  - EYE PAIN [None]
  - ONYCHOCLASIS [None]
  - RETINAL EXUDATES [None]
  - RETINOPATHY [None]
  - VISUAL FIELD DEFECT [None]
